FAERS Safety Report 14990285 (Version 1)
Quarter: 2018Q2

REPORT INFORMATION
  Report Type: Spontaneous
  Country: US (occurrence: US)
  Receive Date: 20180608
  Receipt Date: 20180608
  Transmission Date: 20180711
  Serious: No
  Sender: FDA-Public Use
  Company Number: US-ROCHE-2073633

PATIENT
  Age: 79 Year
  Sex: Female
  Weight: 59.02 kg

DRUGS (2)
  1. ACTEMRA [Suspect]
     Active Substance: TOCILIZUMAB
     Indication: VASCULITIS
     Dosage: YES
     Route: 058
     Dates: start: 201706
  2. PREDNISONE. [Concomitant]
     Active Substance: PREDNISONE
     Dosage: ONGOING: NO
     Route: 065
     Dates: end: 201801

REACTIONS (3)
  - Off label use [Unknown]
  - Pain in extremity [Not Recovered/Not Resolved]
  - Intentional product use issue [Unknown]

NARRATIVE: CASE EVENT DATE: 201710
